FAERS Safety Report 6510535-3 (Version None)
Quarter: 2009Q4

REPORT INFORMATION
  Report Type: 
  Country: None (occurrence: None)
  Receive Date: 20091222
  Receipt Date: 20091210
  Transmission Date: 20100525
  Serious: Yes (Other)
  Sender: FDA-Public Use
  Company Number: CO-WYE-H12730009

PATIENT
  Sex: Female
  Weight: 68 kg

DRUGS (2)
  1. PRISTIQ [Suspect]
     Indication: MAJOR DEPRESSION
     Route: 048
     Dates: start: 20091010, end: 20091104
  2. VALSARTAN [Concomitant]
     Indication: HYPERTENSION
     Dates: start: 20070101

REACTIONS (1)
  - HYPERTENSIVE CRISIS [None]
